FAERS Safety Report 5338118-1 (Version None)
Quarter: 2007Q2

REPORT INFORMATION
  Report Type: 
  Country: None (occurrence: None)
  Receive Date: 20070530
  Receipt Date: 20070518
  Transmission Date: 20071010
  Serious: Yes (Other)
  Sender: FDA-Public Use
  Company Number: PHBS2007ZA08587

PATIENT
  Weight: 46 kg

DRUGS (2)
  1. EXJADE [Suspect]
     Dosage: 1000 MG/D
     Route: 065
  2. EXJADE [Suspect]
     Dosage: 500 MG/D
     Route: 065

REACTIONS (7)
  - ERYTHEMA [None]
  - LIP SWELLING [None]
  - PRURITUS [None]
  - PYREXIA [None]
  - RASH GENERALISED [None]
  - SWELLING FACE [None]
  - URTICARIA [None]
